FAERS Safety Report 6539582-2 (Version None)
Quarter: 2010Q1

REPORT INFORMATION
  Report Type: 
  Country: None (occurrence: None)
  Receive Date: 20100111
  Receipt Date: 20100106
  Transmission Date: 20100710
  Serious: Yes (Other)
  Sender: FDA-Public Use
  Company Number: SPLN20100003

PATIENT
  Sex: Male

DRUGS (1)
  1. SUPPRELIN LA [Suspect]
     Indication: PRECOCIOUS PUBERTY
     Dosage: 1 IN 1 Y, SUB Q IMPLANT
     Route: 058
     Dates: end: 20091229

REACTIONS (8)
  - ASTHENIA [None]
  - DEVICE BREAKAGE [None]
  - GRIP STRENGTH DECREASED [None]
  - HYPOAESTHESIA [None]
  - IATROGENIC INJURY [None]
  - PARAESTHESIA [None]
  - PROCEDURAL COMPLICATION [None]
  - ULNAR NERVE INJURY [None]
